FAERS Safety Report 25545547 (Version 1)
Quarter: 2025Q3

REPORT INFORMATION
  Report Type: Spontaneous
  Country: US (occurrence: None)
  Receive Date: 20250711
  Receipt Date: 20250711
  Transmission Date: 20251021
  Serious: Yes (Life-Threatening)
  Sender: EDGEWELL PERSONAL CARE BRANDS
  Company Number: None

PATIENT
  Age: 16 Year
  Sex: Male

DRUGS (1)
  1. UNAPPROVED DRUG COSMETIC PRODUCTS [Suspect]
     Active Substance: UNAPPROVED DRUG COSMETIC PRODUCTS
     Indication: Skin odour abnormal
     Route: 061
     Dates: start: 20250419, end: 20250419

REACTIONS (3)
  - Rash [None]
  - Respiratory arrest [None]
  - Anaphylactic shock [None]

NARRATIVE: CASE EVENT DATE: 20250419
